FAERS Safety Report 6211845-X (Version None)
Quarter: 2009Q2

REPORT INFORMATION
  Report Type: 
  Country: None (occurrence: None)
  Receive Date: 20090602
  Receipt Date: 20090522
  Transmission Date: 20091009
  Serious: Yes (Death)
  Sender: FDA-Public Use
  Company Number: GB-PFIZER INC-2009207590

PATIENT
  Age: 19 Year

DRUGS (9)
  1. METHYLPREDNISOLONE AND METHYLPREDNISOLONE ACETATE AND METHYLPREDNISOLO [Suspect]
     Indication: IMMUNOSUPPRESSION
     Dosage: 1 G, UNK
     Route: 042
  2. PREDNISOLONE [Suspect]
  3. AZATHIOPRINE [Suspect]
     Indication: IMMUNOSUPPRESSION
     Dosage: 6 MG/KG, UNK
     Route: 048
  4. AMPHOTERICIN B [Suspect]
     Dosage: UNK
  5. ITRACONAZOLE [Suspect]
  6. NEORAL [Suspect]
     Indication: IMMUNOSUPPRESSION
     Dosage: 4.5 MG/KG, UNK
     Route: 048
  7. CEFTAZIDIME [Concomitant]
     Route: 042
  8. GENTAMICIN [Concomitant]
     Route: 042
  9. TEICOPLANIN [Concomitant]
     Route: 042

REACTIONS (1)
  - FUNGAL ENDOCARDITIS [None]
